FAERS Safety Report 10086458 (Version 1)
Quarter: 2014Q2

REPORT INFORMATION
  Report Type: Spontaneous
  Country: US (occurrence: US)
  Receive Date: 20140418
  Receipt Date: 20140418
  Transmission Date: 20141212
  Serious: Yes (Death)
  Sender: FDA-Public Use
  Company Number: US-ASTELLAS-2014US003792

PATIENT
  Age: 42 Year
  Sex: Male

DRUGS (1)
  1. AMBISOME [Suspect]
     Indication: CRYPTOCOCCOSIS
     Route: 042
     Dates: start: 20140218, end: 20140222

REACTIONS (1)
  - Death [Fatal]
